FAERS Safety Report 24653044 (Version 2)
Quarter: 2025Q1

REPORT INFORMATION
  Report Type: Spontaneous
  Country: JP (occurrence: JP)
  Receive Date: 20241122
  Receipt Date: 20250214
  Transmission Date: 20250408
  Serious: Yes (Death, Other)
  Sender: VERICEL
  Company Number: JP-VERICEL-JP-VCEL-24-000412

PATIENT
  Sex: Male
  Weight: 53 kg

DRUGS (1)
  1. BROMELAINS [Suspect]
     Active Substance: BROMELAINS
     Indication: Thermal burn
     Dosage: 30 GRAM, QD
     Route: 061
     Dates: start: 20240726, end: 20240726

REACTIONS (1)
  - Shock haemorrhagic [Fatal]

NARRATIVE: CASE EVENT DATE: 20240101
